FAERS Safety Report 10388775 (Version 1)
Quarter: 2014Q1

REPORT INFORMATION
  Report Type: Spontaneous
  Country: US (occurrence: None)
  Receive Date: 20140306
  Receipt Date: 20140306
  Transmission Date: 20141002
  Serious: Yes (Other)
  Sender: FDA-Public Use
  Company Number: 163-21880-13123351

PATIENT
  Age: 57 Year
  Sex: Male
  Weight: 72.58 kg

DRUGS (5)
  1. REVLIMID (LENALIDOMIDE) (10 MILLIGRAM, CAPSULES) [Suspect]
     Indication: MYELODYSPLASTIC SYNDROME
     Route: 048
     Dates: start: 20130829, end: 20131201
  2. EXJADE [Suspect]
     Indication: IRON OVERLOAD
     Route: 048
  3. ASPIRIN EC (ACETYLSALICYLIC ACID) [Concomitant]
  4. DOXYCYLINE HYCLATE [Concomitant]
  5. D3 (COLECALCIFEROL) (CAPSULES) [Concomitant]

REACTIONS (4)
  - Platelet count decreased [None]
  - White blood cell count decreased [None]
  - Fatigue [None]
  - Pruritus [None]
